FAERS Safety Report 4878837-4 (Version None)
Quarter: 2006Q1

REPORT INFORMATION
  Report Type: 
  Country: None (occurrence: None)
  Receive Date: 20060112
  Receipt Date: 20051213
  Transmission Date: 20060701
  Serious: Yes (Other)
  Sender: FDA-Public Use
  Company Number: 2005JP002375

PATIENT
  Age: 81 Year
  Sex: Male
  Weight: 45 kg

DRUGS (1)
  1. CEFAZOLIN [Suspect]
     Indication: INFECTION PROPHYLAXIS
     Dosage: 2G PER DAY
     Route: 042
     Dates: start: 20051130, end: 20051206

REACTIONS (4)
  - BLOOD CREATININE INCREASED [None]
  - OLIGURIA [None]
  - RENAL DISORDER [None]
  - URINARY RETENTION [None]
